FAERS Safety Report 5116287-6 (Version None)
Quarter: 2006Q3

REPORT INFORMATION
  Report Type: 
  Country: None (occurrence: None)
  Receive Date: 20060925
  Receipt Date: 20060915
  Transmission Date: 20061208
  Serious: Yes (Other)
  Sender: FDA-Public Use
  Company Number: CHPA2006US09351

PATIENT
  Sex: Male

DRUGS (1)
  1. EXCEDRIN BEXTRA STRENGTH (NCH) (CAFFEINE CITRATE, ACETYLSALICYLIC ACID [Suspect]
     Indication: HEADACHE
     Dosage: 2 DF, QD, ORAL
     Route: 048
     Dates: start: 20040915, end: 20060915

REACTIONS (2)
  - DRUG ABUSER [None]
  - STOMACH DISCOMFORT [None]
